FAERS Safety Report 6850059-7 (Version None)
Quarter: 2010Q3

REPORT INFORMATION
  Report Type: 
  Country: None (occurrence: None)
  Receive Date: 20100716
  Receipt Date: 20100712
  Transmission Date: 20110219
  Serious: Yes (Death, Life-Threatening)
  Sender: FDA-Public Use
  Company Number: FI-ABBOTT-10P-055-0656387-00

PATIENT
  Age: 15 Month
  Sex: Male

DRUGS (1)
  1. VALPROATE SODIUM [Suspect]
     Indication: EPILEPSY

REACTIONS (3)
  - CHOLESTASIS [None]
  - HEPATIC NECROSIS [None]
  - LIVER INJURY [None]
